FAERS Safety Report 9643796 (Version 1)
Quarter: 2013Q4

REPORT INFORMATION
  Report Type: Spontaneous
  Country: GB (occurrence: GB)
  Receive Date: 20131024
  Receipt Date: 20131024
  Transmission Date: 20140711
  Serious: Yes (Life-Threatening, Hospitalization)
  Sender: FDA-Public Use
  Company Number: PHHY2013GB118358

PATIENT
  Age: 79 Year
  Sex: Male

DRUGS (8)
  1. CITALOPRAM [Suspect]
     Indication: DEPRESSION
     Dosage: 20 MG, QD
     Route: 048
  2. ACETYLSALICYLIC ACID [Suspect]
     Indication: MYOCARDIAL ISCHAEMIA
     Route: 048
     Dates: end: 20130307
  3. OMEPRAZOLE [Concomitant]
  4. LACTULOSE [Concomitant]
  5. BENPERIDOL [Concomitant]
  6. CETIRIZINE [Concomitant]
  7. PARACETAMOL [Concomitant]
  8. MULTIVITAMIN [Concomitant]

REACTIONS (4)
  - Haemoglobin decreased [Recovering/Resolving]
  - Chest pain [Unknown]
  - Acute myocardial infarction [Recovering/Resolving]
  - Normochromic normocytic anaemia [Unknown]
